FAERS Safety Report 8881118 (Version 1)
Quarter: 2012Q4

REPORT INFORMATION
  Report Type: 
  Country: US (occurrence: US)
  Receive Date: 20121031
  Receipt Date: 20121031
  Transmission Date: 20130627
  Serious: No
  Sender: FDA-Public Use
  Company Number: US-009507513-1210USA009494

PATIENT
  Sex: Female

DRUGS (1)
  1. COPPERTONE SPORT SPF 100 PLUS [Suspect]
     Indication: PRODUCT USED FOR UNKNOWN INDICATION
     Dosage: UNK, bid
     Route: 061
     Dates: start: 201205

REACTIONS (2)
  - Sunburn [Unknown]
  - Thermal burn [None]
